FAERS Safety Report 7385985-6 (Version None)
Quarter: 2011Q1

REPORT INFORMATION
  Report Type: 
  Country: None (occurrence: None)
  Receive Date: 20110331
  Receipt Date: 20100921
  Transmission Date: 20110831
  Serious: Yes (Hospitalization, Other)
  Sender: FDA-Public Use
  Company Number: US-BAYER-201032097NA

PATIENT
  Sex: Female
  Weight: 84 kg

DRUGS (6)
  1. YAZ [Suspect]
     Indication: PRODUCT USED FOR UNKNOWN INDICATION
     Route: 048
  2. YASMIN [Suspect]
     Indication: CONTRACEPTION
     Dosage: UNK
     Route: 048
     Dates: start: 20050101, end: 20100101
  3. NEXIUM [Concomitant]
     Indication: DYSPEPSIA
     Dosage: UNK
     Dates: start: 20000101
  4. RELPAX [Concomitant]
     Dosage: 40 MG, PRN
  5. OCELLA [Suspect]
     Indication: CONTRACEPTION
     Dosage: UNK
     Route: 048
     Dates: start: 20050101, end: 20100101
  6. MAXALT [Concomitant]
     Dosage: UNK
     Dates: start: 20050101

REACTIONS (11)
  - PULMONARY EMBOLISM [None]
  - MYOCARDIAL INFARCTION [None]
  - CEREBRAL THROMBOSIS [None]
  - HYPERTENSION [None]
  - HEPATIC ADENOMA [None]
  - BENIGN HEPATIC NEOPLASM [None]
  - THROMBOPHLEBITIS [None]
  - CEREBRAL HAEMORRHAGE [None]
  - EMBOLISM ARTERIAL [None]
  - GALLBLADDER DISORDER [None]
  - DEEP VEIN THROMBOSIS [None]
